FAERS Safety Report 12525510 (Version 1)
Quarter: 2016Q3

REPORT INFORMATION
  Report Type: Spontaneous
  Country: US (occurrence: US)
  Receive Date: 20160704
  Receipt Date: 20160704
  Transmission Date: 20161109
  Serious: No
  Sender: FDA-Public Use
  Company Number: US-ASTRAZENECA-2016SE56196

PATIENT
  Age: 21475 Day
  Sex: Female
  Weight: 66.7 kg

DRUGS (1)
  1. BYDUREON [Suspect]
     Active Substance: EXENATIDE
     Indication: DIABETES MELLITUS
     Route: 058
     Dates: start: 2013

REACTIONS (3)
  - Nervousness [Unknown]
  - Diabetes mellitus [Unknown]
  - Product quality issue [Unknown]

NARRATIVE: CASE EVENT DATE: 20160523
